FAERS Safety Report 13780444 (Version 4)
Quarter: 2018Q4

REPORT INFORMATION
  Report Type: Spontaneous
  Country: US (occurrence: US)
  Receive Date: 20170724
  Receipt Date: 20181104
  Transmission Date: 20190204
  Serious: Yes (Life-Threatening, Hospitalization, Other)
  Sender: FDA-Public Use
  Company Number: US-009507513-1707USA008993

PATIENT
  Age: 72 Year
  Sex: Male
  Weight: 68 kg

DRUGS (8)
  1. FENTANYL. [Suspect]
     Active Substance: FENTANYL
     Dosage: 2 DOSES ADMINISTERED THREE MINUTES APART
     Route: 042
  2. METOPROLOL. [Suspect]
     Active Substance: METOPROLOL
     Dosage: 100 MG, UNK
  3. PRINIVIL [Suspect]
     Active Substance: LISINOPRIL
     Dosage: 20 MG, UNK
  4. TURMERIC [Suspect]
     Active Substance: HERBALS\TURMERIC
     Dosage: 400 MG, UNK
  5. DIGOXIN. [Suspect]
     Active Substance: DIGOXIN
     Dosage: 125 MICROGRAM, UNK
  6. ACYCLOVIR. [Suspect]
     Active Substance: ACYCLOVIR
     Indication: HERPES ZOSTER
     Dosage: 400 MG, UNK
  7. RIVAROXABAN [Suspect]
     Active Substance: RIVAROXABAN
     Dosage: 10 MG, UNK
  8. FLUOXETINE [Suspect]
     Active Substance: FLUOXETINE HYDROCHLORIDE
     Dosage: 40 MG, UNK

REACTIONS (3)
  - Serotonin syndrome [Recovered/Resolved]
  - Toxicity to various agents [Recovered/Resolved]
  - Myoclonus [Recovered/Resolved]
